FAERS Safety Report 14568228 (Version 1)
Quarter: 2018Q1

REPORT INFORMATION
  Report Type: Spontaneous
  Country: US (occurrence: US)
  Receive Date: 20180223
  Receipt Date: 20180223
  Transmission Date: 20180509
  Serious: No
  Sender: FDA-Public Use
  Company Number: US-IMPAX LABORATORIES, INC-2017-IPXL-00185

PATIENT
  Age: 2 Year
  Sex: Female

DRUGS (2)
  1. EMVERM [Suspect]
     Active Substance: MEBENDAZOLE
     Indication: HELMINTHIC INFECTION
     Dosage: 2 TABLETS, FOR 3 DAYS
     Route: 048
  2. EMVERM [Suspect]
     Active Substance: MEBENDAZOLE
     Indication: ENTEROBIASIS
     Dosage: 2 COURSES; 100 MG, ONE TABLET, EVERY 3 WEEKS
     Route: 048

REACTIONS (1)
  - Drug ineffective [Not Recovered/Not Resolved]
